FAERS Safety Report 15555228 (Version 1)
Quarter: 2018Q4

REPORT INFORMATION
  Report Type: Spontaneous
  Country: TR (occurrence: TR)
  Receive Date: 20181026
  Receipt Date: 20181026
  Transmission Date: 20190205
  Serious: Yes (Other)
  Sender: FDA-Public Use
  Company Number: TR-IMPAX LABORATORIES, INC-2018-IPXL-03439

PATIENT
  Age: 54 Year
  Sex: Male

DRUGS (2)
  1. METFORMIN HYDROCHLORIDE ER [Suspect]
     Active Substance: METFORMIN HYDROCHLORIDE
     Indication: TYPE 2 DIABETES MELLITUS
     Dosage: 1000 MG, 2 /DAY
     Route: 065
  2. AMLODIPIN [Suspect]
     Active Substance: AMLODIPINE BESYLATE
     Indication: HYPERTENSION
     Dosage: 10 MG, 1 /DAY
     Route: 048

REACTIONS (3)
  - Glycosylated haemoglobin increased [Recovering/Resolving]
  - Type 2 diabetes mellitus [Recovering/Resolving]
  - Hernia hiatus repair [Recovering/Resolving]
